FAERS Safety Report 5143013-7 (Version None)
Quarter: 2006Q4

REPORT INFORMATION
  Report Type: 
  Country: None (occurrence: None)
  Receive Date: 20061103
  Receipt Date: 20060302
  Transmission Date: 20070319
  Serious: Yes (Hospitalization)
  Sender: FDA-Public Use
  Company Number: US-ELI_LILLY_AND_COMPANY-US200605002764

PATIENT
  Age: 69 Year
  Sex: Female
  Weight: 81.632 kg

DRUGS (2)
  1. ZYPREXA [Suspect]
     Indication: DEPRESSION
     Dosage: 2.5 MG, UNK
     Dates: start: 19980325, end: 20051202
  2. LOPRESSOR [Concomitant]
     Dates: start: 19991018, end: 20051021

REACTIONS (3)
  - DIABETES MELLITUS [None]
  - LIMB OPERATION [None]
  - VASCULAR BYPASS GRAFT [None]
